FAERS Safety Report 20961333 (Version 1)
Quarter: 2022Q2

REPORT INFORMATION
  Report Type: Spontaneous
  Country: US (occurrence: US)
  Receive Date: 20220615
  Receipt Date: 20220615
  Transmission Date: 20220721
  Serious: Yes (Hospitalization, Other)
  Sender: FDA-Public Use
  Company Number: US-UNITED THERAPEUTICS-UNT-2022-012016

PATIENT
  Age: 52 Year
  Sex: Male

DRUGS (3)
  1. REMODULIN [Suspect]
     Active Substance: TREPROSTINIL
     Indication: Pulmonary arterial hypertension
     Dosage: UNK, CONTINUING
     Route: 058
     Dates: start: 20220422
  2. REMODULIN [Suspect]
     Active Substance: TREPROSTINIL
     Dosage: 0.018283 ?G/KG, CONTINUING
     Route: 058
  3. REMODULIN [Suspect]
     Active Substance: TREPROSTINIL
     Dosage: UNKNOWN (0.001 ?G/KG- 0.150 ?G/KG [MAX]), CONTINUING
     Route: 058

REACTIONS (6)
  - Dizziness [Unknown]
  - Vomiting [Unknown]
  - Syncope [Unknown]
  - Infusion site pruritus [Unknown]
  - Infusion site erythema [Unknown]
  - Headache [Unknown]

NARRATIVE: CASE EVENT DATE: 20220529
